FAERS Safety Report 7819348-3 (Version None)
Quarter: 2011Q4

REPORT INFORMATION
  Report Type: 
  Country: None (occurrence: None)
  Receive Date: 20111018
  Receipt Date: 20101111
  Transmission Date: 20120403
  Serious: No
  Sender: FDA-Public Use
  Company Number: US-ASTRAZENECA-2010SE53972

PATIENT
  Sex: Male
  Weight: 61.2 kg

DRUGS (1)
  1. SYMBICORT [Suspect]
     Dosage: 320 MCG TWO TIMES A DAY
     Route: 055
     Dates: start: 20100801

REACTIONS (1)
  - PHARYNGEAL DISORDER [None]
